FAERS Safety Report 7801762-3 (Version None)
Quarter: 2011Q4

REPORT INFORMATION
  Report Type: 
  Country: None (occurrence: None)
  Receive Date: 20111007
  Receipt Date: 20110928
  Transmission Date: 20120403
  Serious: No
  Sender: FDA-Public Use
  Company Number: US-B.I. PHARMACEUTICALS,INC./RIDGEFIELD-2011-BP-21035BP

PATIENT
  Sex: Male

DRUGS (15)
  1. SIMVASTATIN [Concomitant]
     Indication: BLOOD CHOLESTEROL INCREASED
     Dosage: 20 MG
     Route: 048
  2. M.V.I. [Concomitant]
     Indication: PROPHYLAXIS
     Route: 048
  3. OXYCODONE HCL [Concomitant]
     Indication: ARTHRALGIA
     Route: 048
  4. METOLAZONE [Concomitant]
     Indication: HYPERTENSION
     Dosage: 5 MG
     Route: 048
  5. ASPIRIN [Concomitant]
     Indication: ATRIAL FIBRILLATION
     Dosage: 81 MG
     Route: 048
  6. FUROSEMIDE [Concomitant]
     Indication: HYPERTENSION
     Dosage: 120 MG
     Route: 048
  7. SOTALOL HCL [Concomitant]
     Indication: ATRIAL FIBRILLATION
     Dosage: 80 MG
     Route: 048
  8. FISH OIL [Concomitant]
     Indication: PROPHYLAXIS
     Dosage: 1200 MG
     Route: 048
  9. COQ-10 [Concomitant]
     Indication: PROPHYLAXIS
     Dosage: 100 MG
     Route: 048
  10. VIT C [Concomitant]
     Indication: PROPHYLAXIS
     Dosage: 1000 MG
     Route: 048
  11. VITAMIN B-12 [Concomitant]
     Indication: PROPHYLAXIS
     Dosage: 500 MG
     Route: 060
  12. TYLENOL-500 [Concomitant]
  13. PRADAXA [Suspect]
     Indication: ATRIAL FIBRILLATION
     Dosage: 300 MG
     Route: 048
     Dates: start: 20110822, end: 20110906
  14. LISINOPRIL [Concomitant]
     Indication: HYPERTENSION
     Dosage: 5 MG
     Route: 048
  15. NITROGLYCERIN [Concomitant]

REACTIONS (3)
  - DIARRHOEA [None]
  - ABDOMINAL DISCOMFORT [None]
  - FATIGUE [None]
